FAERS Safety Report 14228938 (Version 1)
Quarter: 2017Q4

REPORT INFORMATION
  Report Type: Other
  Country: US (occurrence: US)
  Receive Date: 20171128
  Receipt Date: 20171128
  Transmission Date: 20180321
  Serious: Yes (Other)
  Sender: FDA-Public Use
  Company Number: US-VELOXIS PHARMACEUTICALS-2036108

PATIENT
  Age: 23 Month
  Sex: Female

DRUGS (6)
  1. ENVARSUS XR [Suspect]
     Active Substance: TACROLIMUS
     Indication: PROPHYLAXIS AGAINST GRAFT VERSUS HOST DISEASE
  2. ANTILYMPHOCYTE IMMUNOGLOBULIN (HORSE) [Concomitant]
     Active Substance: EQUINE THYMOCYTE IMMUNE GLOBULIN
  3. MYCOPHENOLATE MOFETIL. [Concomitant]
     Active Substance: MYCOPHENOLATE MOFETIL
  4. BORTEZOMIB [Concomitant]
     Active Substance: BORTEZOMIB
  5. CYCLOPHOSPHAMIDE. [Concomitant]
     Active Substance: CYCLOPHOSPHAMIDE
  6. BUSULFAN. [Concomitant]
     Active Substance: BUSULFAN

REACTIONS (4)
  - Venoocclusive liver disease [Recovered/Resolved]
  - Intentional product use issue [Unknown]
  - Chronic graft versus host disease [Recovered/Resolved]
  - Acute graft versus host disease [Recovered/Resolved]
